FAERS Safety Report 5096872-0 (Version None)
Quarter: 2006Q3

REPORT INFORMATION
  Report Type: 
  Country: None (occurrence: None)
  Receive Date: 20060901
  Receipt Date: 20060901
  Transmission Date: 20061208
  Serious: Yes (Life-Threatening, Hospitalization)
  Sender: FDA-Public Use
  Company Number: None

PATIENT
  Age: 48 Year
  Sex: Female

DRUGS (3)
  1. TOBI [Suspect]
     Indication: ASTHMA
     Dosage: 300MG   BID   INHAL
     Route: 055
     Dates: start: 20060825, end: 20060831
  2. TOBI [Suspect]
     Indication: BRONCHIECTASIS
     Dosage: 300MG   BID   INHAL
     Route: 055
     Dates: start: 20060825, end: 20060831
  3. TOBI [Suspect]
     Indication: RHINITIS
     Dosage: 300MG   BID   INHAL
     Route: 055
     Dates: start: 20060825, end: 20060831

REACTIONS (3)
  - FEELING HOT [None]
  - FLUSHING [None]
  - HEART RATE INCREASED [None]
